FAERS Safety Report 5374415-1 (Version None)
Quarter: 2007Q2

REPORT INFORMATION
  Report Type: 
  Country: None (occurrence: None)
  Receive Date: 20070629
  Receipt Date: 20070622
  Transmission Date: 20071010
  Serious: Yes (Other)
  Sender: FDA-Public Use
  Company Number: JP-AVENTIS-200711646JP

PATIENT
  Age: 58 Year
  Sex: Female

DRUGS (1)
  1. LASIX [Suspect]

REACTIONS (1)
  - PSEUDO-BARTTER SYNDROME [None]
